FAERS Safety Report 8622335 (Version 3)
Quarter: 2012Q4

REPORT INFORMATION
  Report Type: 
  Country: GB (occurrence: GB)
  Receive Date: 20120619
  Receipt Date: 20120906
  Transmission Date: 20130627
  Serious: Yes (Death, Hospitalization)
  Sender: FDA-Public Use
  Company Number: GB-ROCHE-1079599

PATIENT
  Age: 90 None
  Sex: Female
  Weight: 82.4 kg

DRUGS (9)
  1. LUCENTIS [Suspect]
     Indication: AGE-RELATED MACULAR DEGENERATION
     Route: 050
  2. LUCENTIS [Suspect]
     Route: 050
     Dates: start: 20111124, end: 20111124
  3. VALSARTAN [Concomitant]
     Route: 065
     Dates: start: 201109
  4. BUMETANIDE [Concomitant]
     Route: 065
     Dates: start: 200205
  5. OMEPRAZOLE [Concomitant]
     Route: 065
     Dates: start: 200812
  6. ASPIRIN [Concomitant]
     Route: 065
     Dates: start: 200904
  7. ALENDRONATE SODIUM [Concomitant]
     Route: 065
     Dates: start: 200912
  8. CITALOPRAM [Concomitant]
     Route: 065
     Dates: start: 201110
  9. ANASTROZOLE [Concomitant]
     Route: 065
     Dates: start: 200912

REACTIONS (6)
  - Sepsis [Fatal]
  - Pneumonia aspiration [Fatal]
  - Cerebrovascular disorder [Fatal]
  - Dysphagia [Unknown]
  - Dehydration [Unknown]
  - Inappropriate schedule of drug administration [Unknown]
